FAERS Safety Report 15983712 (Version 1)
Quarter: 2019Q1

REPORT INFORMATION
  Report Type: Spontaneous
  Country: US (occurrence: US)
  Receive Date: 20190219
  Receipt Date: 20190219
  Transmission Date: 20190418
  Serious: No
  Sender: FDA-Public Use
  Company Number: None

PATIENT
  Age: 49 Year
  Sex: Male
  Weight: 75.6 kg

DRUGS (2)
  1. AIMOVIG [Suspect]
     Active Substance: ERENUMAB-AOOE
     Indication: MIGRAINE
     Dosage: ?          OTHER FREQUENCY:MONTHLY;?
     Route: 030
     Dates: end: 20190206
  2. RELPAX [Concomitant]
     Active Substance: ELETRIPTAN HYDROBROMIDE

REACTIONS (7)
  - Pain in extremity [None]
  - Arthralgia [None]
  - Musculoskeletal pain [None]
  - Fatigue [None]
  - Chest pain [None]
  - Back pain [None]
  - Eye pain [None]

NARRATIVE: CASE EVENT DATE: 20181201
